FAERS Safety Report 9641380 (Version 1)
Quarter: 2013Q4

REPORT INFORMATION
  Report Type: Report from Study
  Country: US (occurrence: US)
  Receive Date: 20131023
  Receipt Date: 20131023
  Transmission Date: 20140711
  Serious: No
  Sender: FDA-Public Use
  Company Number: US-ABBVIE-13P-163-1093236-00

PATIENT
  Age: 37 Year
  Sex: Female

DRUGS (2)
  1. LUPRON DEPOT [Suspect]
     Indication: UTERINE LEIOMYOMA
     Dosage: 3.75 MG / MONTH
     Dates: start: 20130429
  2. LUPRON DEPOT [Suspect]
     Indication: UTERINE ENLARGEMENT

REACTIONS (1)
  - Menstruation irregular [Not Recovered/Not Resolved]
